FAERS Safety Report 12835041 (Version 3)
Quarter: 2019Q1

REPORT INFORMATION
  Report Type: Spontaneous
  Country: US (occurrence: US)
  Receive Date: 20161010
  Receipt Date: 20190308
  Transmission Date: 20190417
  Serious: Yes (Death, Hospitalization, Other)
  Sender: FDA-Public Use
  Company Number: US-ASTRAZENECA-2016SF05386

PATIENT
  Sex: Male

DRUGS (13)
  1. METFORMIN [Concomitant]
     Active Substance: METFORMIN HYDROCHLORIDE
  2. KOMBIGLYZE XR [Suspect]
     Active Substance: METFORMIN HYDROCHLORIDE\SAXAGLIPTIN HYDROCHLORIDE
     Indication: TYPE 2 DIABETES MELLITUS
     Route: 048
     Dates: start: 201306, end: 201412
  3. KETOCONAZOLE. [Concomitant]
     Active Substance: KETOCONAZOLE
  4. LANTUS [Concomitant]
     Active Substance: INSULIN GLARGINE
  5. ONGLYZA [Suspect]
     Active Substance: SAXAGLIPTIN HYDROCHLORIDE
     Indication: TYPE 2 DIABETES MELLITUS
     Route: 048
     Dates: start: 201306, end: 201412
  6. AMIODARONE [Concomitant]
     Active Substance: AMIODARONE
  7. SUCRALFATE. [Concomitant]
     Active Substance: SUCRALFATE
  8. AMOXICILLIN. [Concomitant]
     Active Substance: AMOXICILLIN
  9. CEPHALEXIN. [Concomitant]
     Active Substance: CEPHALEXIN
  10. LORAZEPAM. [Concomitant]
     Active Substance: LORAZEPAM
  11. PHENYLEPHRINE [Concomitant]
     Active Substance: PHENYLEPHRINE\PHENYLEPHRINE HYDROCHLORIDE
  12. KOMBIGLYZE XR [Suspect]
     Active Substance: METFORMIN HYDROCHLORIDE\SAXAGLIPTIN HYDROCHLORIDE
     Indication: TYPE 2 DIABETES MELLITUS
     Route: 048
     Dates: start: 20140120
  13. PRAVASTATIN. [Concomitant]
     Active Substance: PRAVASTATIN

REACTIONS (5)
  - Cardiac failure congestive [Unknown]
  - Cardiac arrest [Unknown]
  - Cardiac failure [Unknown]
  - Death [Fatal]
  - Coronary artery disease [Unknown]
